FAERS Safety Report 5006357-5 (Version None)
Quarter: 2006Q2

REPORT INFORMATION
  Report Type: 
  Country: None (occurrence: None)
  Receive Date: 20060516
  Receipt Date: 20060504
  Transmission Date: 20061013
  Serious: Yes (Disabling, Other)
  Sender: FDA-Public Use
  Company Number: 2006060661

PATIENT
  Age: 37 Year
  Sex: Female
  Weight: 83.9154 kg

DRUGS (1)
  1. DEPO-PROVERA [Suspect]
     Indication: ENDOMETRIOSIS
     Dosage: 150 MG (150 MG, EVERY 2 MONTHS) INTRAMUSCULAR
     Route: 030

REACTIONS (7)
  - DIFFICULTY IN WALKING [None]
  - HOT FLUSH [None]
  - INJECTION SITE PAIN [None]
  - NAUSEA [None]
  - NIGHT SWEATS [None]
  - VOMITING [None]
  - WEIGHT DECREASED [None]
